FAERS Safety Report 25360115 (Version 3)
Quarter: 2025Q3

REPORT INFORMATION
  Report Type: Report from Study
  Country: EU (occurrence: EU)
  Receive Date: 20250527
  Receipt Date: 20250714
  Transmission Date: 20251020
  Serious: Yes (Hospitalization)
  Sender: NOVARTIS
  Company Number: EU-002147023-NVSC2025RO082817

PATIENT
  Age: 66 Year
  Sex: Female

DRUGS (7)
  1. TASIGNA [Suspect]
     Active Substance: NILOTINIB
     Indication: Chronic leukaemia
     Dosage: 2 DOSAGE FORM (150 MG), BID (2 IN THE MORNING AND 2 IN THE EVENING; 4 PER DAY)
     Route: 048
     Dates: start: 20250320
  2. MIRTAZAPINE [Concomitant]
     Active Substance: MIRTAZAPINE
     Indication: Depression
     Dosage: 30 MG, BID (1 IN MORNING AND 1 IN EVENING)
     Route: 065
  3. MIRTAZAPINE [Concomitant]
     Active Substance: MIRTAZAPINE
     Indication: Insomnia
  4. LORAZEPAM [Concomitant]
     Active Substance: LORAZEPAM
     Indication: Depression
     Dosage: 1 MG, QD IN EVENING
     Route: 065
  5. LORAZEPAM [Concomitant]
     Active Substance: LORAZEPAM
     Indication: Insomnia
  6. CINOLAZEPAM [Concomitant]
     Active Substance: CINOLAZEPAM
     Indication: Depression
     Dosage: UNK UNK, QD IN EVENING
     Route: 065
  7. CINOLAZEPAM [Concomitant]
     Active Substance: CINOLAZEPAM
     Indication: Insomnia

REACTIONS (10)
  - Vomiting [Recovered/Resolved]
  - Dizziness [Recovered/Resolved]
  - Head discomfort [Not Recovered/Not Resolved]
  - Ear discomfort [Not Recovered/Not Resolved]
  - Tremor [Recovered/Resolved]
  - Burning sensation [Recovered/Resolved]
  - Dyspnoea [Not Recovered/Not Resolved]
  - Asthenia [Not Recovered/Not Resolved]
  - Heart rate increased [Recovered/Resolved]
  - Heart rate increased [Not Recovered/Not Resolved]

NARRATIVE: CASE EVENT DATE: 20250501
